FAERS Safety Report 25631973 (Version 1)
Quarter: 2025Q3

REPORT INFORMATION
  Report Type: Spontaneous
  Country: US (occurrence: US)
  Receive Date: 20250801
  Receipt Date: 20250801
  Transmission Date: 20251020
  Serious: Yes (Life-Threatening, Hospitalization)
  Sender: MYLAN
  Company Number: US-MYLANLABS-2025M1063389

PATIENT
  Age: 73 Year
  Sex: Female

DRUGS (36)
  1. NOREPINEPHRINE [Suspect]
     Active Substance: NOREPINEPHRINE
     Indication: Hypotension
  2. NOREPINEPHRINE [Suspect]
     Active Substance: NOREPINEPHRINE
     Route: 065
  3. NOREPINEPHRINE [Suspect]
     Active Substance: NOREPINEPHRINE
     Route: 065
  4. NOREPINEPHRINE [Suspect]
     Active Substance: NOREPINEPHRINE
  5. MIDODRINE [Suspect]
     Active Substance: MIDODRINE
     Indication: Hypotension
  6. MIDODRINE [Suspect]
     Active Substance: MIDODRINE
     Route: 065
  7. MIDODRINE [Suspect]
     Active Substance: MIDODRINE
     Route: 065
  8. MIDODRINE [Suspect]
     Active Substance: MIDODRINE
  9. CALCIUM GLUCONATE [Concomitant]
     Active Substance: CALCIUM GLUCONATE
     Indication: Product used for unknown indication
  10. CALCIUM GLUCONATE [Concomitant]
     Active Substance: CALCIUM GLUCONATE
     Route: 065
  11. CALCIUM GLUCONATE [Concomitant]
     Active Substance: CALCIUM GLUCONATE
     Route: 065
  12. CALCIUM GLUCONATE [Concomitant]
     Active Substance: CALCIUM GLUCONATE
  13. DEXTROSE [Concomitant]
     Active Substance: DEXTROSE MONOHYDRATE
     Indication: Product used for unknown indication
  14. DEXTROSE [Concomitant]
     Active Substance: DEXTROSE MONOHYDRATE
     Route: 065
  15. DEXTROSE [Concomitant]
     Active Substance: DEXTROSE MONOHYDRATE
     Route: 065
  16. DEXTROSE [Concomitant]
     Active Substance: DEXTROSE MONOHYDRATE
  17. INSULIN NOS [Concomitant]
     Active Substance: INSULIN NOS
     Indication: Product used for unknown indication
  18. INSULIN NOS [Concomitant]
     Active Substance: INSULIN NOS
     Route: 065
  19. INSULIN NOS [Concomitant]
     Active Substance: INSULIN NOS
     Route: 065
  20. INSULIN NOS [Concomitant]
     Active Substance: INSULIN NOS
  21. ZIRCONIUM SILICATE [Concomitant]
     Active Substance: ZIRCONIUM SILICATE
     Indication: Product used for unknown indication
  22. ZIRCONIUM SILICATE [Concomitant]
     Active Substance: ZIRCONIUM SILICATE
     Route: 065
  23. ZIRCONIUM SILICATE [Concomitant]
     Active Substance: ZIRCONIUM SILICATE
     Route: 065
  24. ZIRCONIUM SILICATE [Concomitant]
     Active Substance: ZIRCONIUM SILICATE
  25. ALBUTEROL [Concomitant]
     Active Substance: ALBUTEROL
     Indication: Product used for unknown indication
  26. ALBUTEROL [Concomitant]
     Active Substance: ALBUTEROL
     Route: 065
  27. ALBUTEROL [Concomitant]
     Active Substance: ALBUTEROL
     Route: 065
  28. ALBUTEROL [Concomitant]
     Active Substance: ALBUTEROL
  29. SEVELAMER [Concomitant]
     Active Substance: SEVELAMER
     Indication: Tumour lysis syndrome
  30. SEVELAMER [Concomitant]
     Active Substance: SEVELAMER
     Route: 065
  31. SEVELAMER [Concomitant]
     Active Substance: SEVELAMER
     Route: 065
  32. SEVELAMER [Concomitant]
     Active Substance: SEVELAMER
  33. RASBURICASE [Concomitant]
     Active Substance: RASBURICASE
     Indication: Tumour lysis syndrome
  34. RASBURICASE [Concomitant]
     Active Substance: RASBURICASE
     Route: 065
  35. RASBURICASE [Concomitant]
     Active Substance: RASBURICASE
     Route: 065
  36. RASBURICASE [Concomitant]
     Active Substance: RASBURICASE

REACTIONS (1)
  - Drug ineffective [Unknown]
